FAERS Safety Report 9938707 (Version 1)
Quarter: 2014Q1

REPORT INFORMATION
  Report Type: Spontaneous
  Country: TR (occurrence: TR)
  Receive Date: 20140303
  Receipt Date: 20140303
  Transmission Date: 20141002
  Serious: Yes (Hospitalization)
  Sender: FDA-Public Use
  Company Number: TR-NOVOPROD-400963

PATIENT
  Age: 31 Year
  Sex: Female
  Weight: 96 kg

DRUGS (4)
  1. NOVORAPID FLEXPEN [Suspect]
     Indication: GESTATIONAL DIABETES
     Dosage: 38 U, QD
     Route: 058
     Dates: start: 20140127
  2. LEVEMIR FLEXPEN [Suspect]
     Indication: GESTATIONAL DIABETES
     Dosage: 32 U, QD
     Route: 058
     Dates: start: 20140203
  3. ESTROFEM [Suspect]
     Indication: INFERTILITY
     Dosage: 1 TAB, TID
     Route: 048
     Dates: start: 20140123
  4. FOLIDOCE [Concomitant]
     Indication: VITAMIN SUPPLEMENTATION
     Dosage: 1 DF, QD (1X1)
     Route: 048
     Dates: start: 20140123

REACTIONS (3)
  - Hypertension [Recovered/Resolved]
  - Blood glucose abnormal [Recovered/Resolved]
  - Exposure during pregnancy [Unknown]
